FAERS Safety Report 19021125 (Version 1)
Quarter: 2021Q1

REPORT INFORMATION
  Report Type: Spontaneous
  Country: JP (occurrence: JP)
  Receive Date: 20210317
  Receipt Date: 20210317
  Transmission Date: 20210420
  Serious: Yes (Life-Threatening, Hospitalization, Other)
  Sender: FDA-Public Use
  Company Number: JP-ALLERGAN-2111386US

PATIENT
  Sex: Male

DRUGS (2)
  1. MESALAZINE UNK [Suspect]
     Active Substance: MESALAMINE
     Indication: COLITIS ULCERATIVE
     Dosage: UNK
  2. MESALAZINE UNK [Suspect]
     Active Substance: MESALAMINE
     Dosage: UNK

REACTIONS (6)
  - Drug ineffective [Unknown]
  - Myocarditis [Recovered/Resolved]
  - Drug hypersensitivity [Recovering/Resolving]
  - Cardiac arrest [Recovered/Resolved]
  - Lung infiltration [Recovering/Resolving]
  - Colitis [Recovering/Resolving]
